FAERS Safety Report 6022068-1 (Version None)
Quarter: 2008Q4

REPORT INFORMATION
  Report Type: 
  Country: None (occurrence: None)
  Receive Date: 20081229
  Receipt Date: 20081217
  Transmission Date: 20090506
  Serious: Yes (Other)
  Sender: FDA-Public Use
  Company Number: GB-PFIZER INC-2008157630

PATIENT

DRUGS (5)
  1. CHAMPIX [Suspect]
     Dosage: UNK
     Route: 048
  2. ACETYLSALICYLIC ACID [Concomitant]
  3. METFORMIN [Concomitant]
  4. PIOGLITAZONE HYDROCHLORIDE [Concomitant]
  5. SIMVASTATIN [Concomitant]

REACTIONS (1)
  - RENAL PAIN [None]
